FAERS Safety Report 15751037 (Version 1)
Quarter: 2018Q4

REPORT INFORMATION
  Report Type: Spontaneous
  Country: US (occurrence: US)
  Receive Date: 20181221
  Receipt Date: 20181221
  Transmission Date: 20190205
  Serious: No
  Sender: FDA-Public Use
  Company Number: US-THERAPEUTICSMD-2018TMD00313

PATIENT
  Age: 54 Year
  Sex: Female
  Weight: 52.61 kg

DRUGS (3)
  1. IMVEXXY [Suspect]
     Active Substance: ESTRADIOL
     Indication: VULVOVAGINAL DRYNESS
     Dosage: 10 ?G, 1X/DAYBEFORE BED
     Route: 067
     Dates: start: 20180915
  2. PROGESTERONE. [Concomitant]
     Active Substance: PROGESTERONE
  3. IMVEXXY [Suspect]
     Active Substance: ESTRADIOL
     Dosage: 10 ?G, 2X/WEEK BEFORE BED
     Route: 067
     Dates: end: 20181028

REACTIONS (5)
  - Breast tenderness [Not Recovered/Not Resolved]
  - Abdominal distension [Recovering/Resolving]
  - Vaginal discharge [Unknown]
  - Off label use [Recovered/Resolved]
  - Vulvovaginal pruritus [Not Recovered/Not Resolved]

NARRATIVE: CASE EVENT DATE: 20180915
